FAERS Safety Report 9780860 (Version 2)
Quarter: 2014Q1

REPORT INFORMATION
  Report Type: Spontaneous
  Country: JP (occurrence: JP)
  Receive Date: 20131224
  Receipt Date: 20140128
  Transmission Date: 20141002
  Serious: No
  Sender: FDA-Public Use
  Company Number: PHHY2013JP150236

PATIENT
  Age: 69 Year
  Sex: Female

DRUGS (2)
  1. GILENYA [Suspect]
     Indication: MULTIPLE SCLEROSIS
     Dosage: 0.5 MG, QD
     Route: 048
     Dates: start: 20120822, end: 20130104
  2. GILENYA [Suspect]
     Dosage: 0.25 MG, QD
     Route: 048
     Dates: start: 20130110

REACTIONS (1)
  - Prescribed underdose [Not Recovered/Not Resolved]
